FAERS Safety Report 10572896 (Version 1)
Quarter: 2014Q4

REPORT INFORMATION
  Report Type: Spontaneous
  Country: CA (occurrence: CA)
  Receive Date: 20141110
  Receipt Date: 20141110
  Transmission Date: 20150529
  Serious: Yes (Other)
  Sender: FDA-Public Use
  Company Number: CA-SA-2014SA150618

PATIENT
  Age: 14 Month
  Sex: Male

DRUGS (1)
  1. LASIX [Suspect]
     Active Substance: FUROSEMIDE
     Indication: CARDIAC DISORDER
     Route: 048

REACTIONS (1)
  - Aspiration [Not Recovered/Not Resolved]
